FAERS Safety Report 7432821-5 (Version None)
Quarter: 2011Q2

REPORT INFORMATION
  Report Type: 
  Country: None (occurrence: None)
  Receive Date: 20110422
  Receipt Date: 20110413
  Transmission Date: 20111010
  Serious: Yes (Hospitalization)
  Sender: FDA-Public Use
  Company Number: BR-ASTRAZENECA-2011SE21438

PATIENT
  Sex: Male
  Weight: 65 kg

DRUGS (4)
  1. SELOZOK [Suspect]
     Indication: ARRHYTHMIA
     Route: 048
     Dates: start: 20090101
  2. SELOZOK [Suspect]
     Indication: HYPERTENSION
     Route: 048
     Dates: start: 20090101
  3. ATACAND HCT [Suspect]
     Indication: HYPERTENSION
     Dosage: 8/12.5 MG
     Route: 048
     Dates: start: 20080101
  4. SOMALGIN CARDIO [Concomitant]
     Route: 048
     Dates: start: 20080101

REACTIONS (2)
  - CAROTID ARTERY OCCLUSION [None]
  - ARRHYTHMIA [None]
